FAERS Safety Report 8531751-5 (Version None)
Quarter: 2012Q3

REPORT INFORMATION
  Report Type: 
  Country: None (occurrence: None)
  Receive Date: 20120723
  Receipt Date: 20120712
  Transmission Date: 20120928
  Serious: Yes (Hospitalization)
  Sender: FDA-Public Use
  Company Number: JP-VERTEX PHARMACEUTICALS INC.-AE-2012-010602

PATIENT
  Age: 70 Year
  Sex: Male

DRUGS (12)
  1. TELAVIC (TELAPREVIR) [Suspect]
     Route: 048
     Dates: start: 20120524, end: 20120527
  2. TELAVIC (TELAPREVIR) [Suspect]
     Route: 048
     Dates: start: 20120528
  3. EPADEL S [Concomitant]
     Route: 048
     Dates: start: 20120510
  4. PEGINTERFERON ALFA-2B [Concomitant]
     Route: 058
     Dates: start: 20120510, end: 20120530
  5. AMOBAN [Concomitant]
     Route: 048
  6. FEBURIC [Concomitant]
     Route: 048
     Dates: start: 20120510
  7. LOXONIN [Concomitant]
     Route: 048
  8. RIBAVIRIN [Concomitant]
     Route: 048
     Dates: start: 20120524
  9. FERROUS CITRATE [Concomitant]
     Route: 048
  10. DIOVAN [Concomitant]
     Route: 048
  11. TELAVIC (TELAPREVIR) [Suspect]
     Indication: HEPATITIS C
     Route: 048
     Dates: start: 20120510, end: 20120523
  12. RIBAVIRIN [Concomitant]
     Route: 048
     Dates: start: 20120510, end: 20120523

REACTIONS (2)
  - OFF LABEL USE [None]
  - PYELONEPHRITIS [None]
